FAERS Safety Report 4398225-7 (Version None)
Quarter: 2004Q3

REPORT INFORMATION
  Report Type: 
  Country: None (occurrence: None)
  Receive Date: 20040715
  Receipt Date: 20040630
  Transmission Date: 20050211
  Serious: Yes (Life-Threatening)
  Sender: FDA-Public Use
  Company Number: 200412229JP

PATIENT
  Age: 70 Year
  Sex: Female

DRUGS (3)
  1. KETEK [Suspect]
     Indication: RESPIRATORY TRACT INFECTION
     Route: 048
     Dates: start: 20040617, end: 20040621
  2. RYTHMODAN [Suspect]
  3. ZESULAN [Concomitant]

REACTIONS (1)
  - VENTRICULAR FIBRILLATION [None]
